FAERS Safety Report 19462515 (Version 1)
Quarter: 2021Q2

REPORT INFORMATION
  Report Type: Spontaneous
  Country: NO (occurrence: NO)
  Receive Date: 20210625
  Receipt Date: 20210625
  Transmission Date: 20210717
  Serious: Yes (Hospitalization, Other)
  Sender: FDA-Public Use
  Company Number: NO-JNJFOC-20210646759

PATIENT
  Age: 33 Year
  Sex: Male

DRUGS (1)
  1. SIMPONI [Suspect]
     Active Substance: GOLIMUMAB
     Indication: POLYARTHRITIS
     Dosage: 50 MILLIGRAM EVERY 3?4. WEEK.SIMPONI HAS BEEN PAUSED AT TIMES. OTHER TNF INHIBITORS WERE USED BEF...
     Route: 058
     Dates: start: 201504, end: 202102

REACTIONS (2)
  - Astrocytoma [Recovering/Resolving]
  - Hospitalisation [Unknown]

NARRATIVE: CASE EVENT DATE: 202002
